FAERS Safety Report 19410202 (Version 1)
Quarter: 2021Q2

REPORT INFORMATION
  Report Type: Report from Study
  Country: CA (occurrence: CA)
  Receive Date: 20210614
  Receipt Date: 20210614
  Transmission Date: 20210717
  Serious: Yes (Other)
  Sender: FDA-Public Use
  Company Number: CA-B.I. PHARMACEUTICALS,INC./RIDGEFIELD-2021-BI-107412

PATIENT
  Age: 72 Year
  Sex: Male

DRUGS (1)
  1. MIRAPEX [Suspect]
     Active Substance: PRAMIPEXOLE DIHYDROCHLORIDE
     Indication: RESTLESS LEGS SYNDROME

REACTIONS (4)
  - Psychosexual disorder [Recovering/Resolving]
  - Obsessive-compulsive disorder [Recovering/Resolving]
  - Sexual abuse [Unknown]
  - Abnormal behaviour [Recovering/Resolving]
